FAERS Safety Report 25860791 (Version 2)
Quarter: 2025Q4

REPORT INFORMATION
  Report Type: Spontaneous
  Country: US (occurrence: US)
  Receive Date: 20250929
  Receipt Date: 20251224
  Transmission Date: 20260117
  Serious: No
  Sender: SANOFI AVENTIS
  Company Number: US-SA-2025SA289655

PATIENT
  Age: 60 Year
  Sex: Female
  Weight: 51.36 kg

DRUGS (14)
  1. DUPIXENT [Suspect]
     Active Substance: DUPILUMAB
     Indication: Asthma
     Dosage: 600 MG, 1X
     Route: 058
     Dates: start: 20250916, end: 20250916
  2. DUPIXENT [Suspect]
     Active Substance: DUPILUMAB
     Indication: Chronic obstructive pulmonary disease
  3. OXYGEN [Concomitant]
     Active Substance: OXYGEN
  4. STIOLTO RESPIMAT [Concomitant]
     Active Substance: OLODATEROL HYDROCHLORIDE\TIOTROPIUM BROMIDE MONOHYDRATE
  5. ASMANEX HFA [Concomitant]
     Active Substance: MOMETASONE FUROATE
  6. MONTELUKAST SODIUM [Concomitant]
     Active Substance: MONTELUKAST SODIUM
  7. LAMOTRIGINE [Concomitant]
     Active Substance: LAMOTRIGINE
  8. MIRTAZAPINE [Concomitant]
     Active Substance: MIRTAZAPINE
  9. ALBUTEROL\IPRATROPIUM [Concomitant]
     Active Substance: ALBUTEROL\IPRATROPIUM
  10. BUSPIRONE HCL [Concomitant]
     Active Substance: BUSPIRONE HYDROCHLORIDE
  11. AZITHROMYCIN [Concomitant]
     Active Substance: AZITHROMYCIN
  12. ALPRAZOLAM [Concomitant]
     Active Substance: ALPRAZOLAM
  13. ROFLUMILAST [Concomitant]
     Active Substance: ROFLUMILAST
  14. ALBUTEROL SULFATE [Concomitant]
     Active Substance: ALBUTEROL SULFATE

REACTIONS (9)
  - Heart rate increased [Recovered/Resolved]
  - Pain [Recovering/Resolving]
  - Bone pain [Recovering/Resolving]
  - Joint swelling [Recovered/Resolved]
  - Blue toe syndrome [Unknown]
  - Arthralgia [Recovering/Resolving]
  - Eczema [Unknown]
  - Rash [Unknown]
  - Skin exfoliation [Unknown]

NARRATIVE: CASE EVENT DATE: 20250101
